FAERS Safety Report 19953724 (Version 1)
Quarter: 2021Q4

REPORT INFORMATION
  Report Type: Spontaneous
  Country: US (occurrence: US)
  Receive Date: 20211014
  Receipt Date: 20211014
  Transmission Date: 20220303
  Serious: No
  Sender: FDA-Public Use
  Company Number: None

PATIENT
  Age: 47 Year
  Sex: Female
  Weight: 114.75 kg

DRUGS (1)
  1. INVEGA [Suspect]
     Active Substance: PALIPERIDONE
     Indication: Schizophrenia
     Route: 058

REACTIONS (14)
  - Swelling [None]
  - Cellulitis [None]
  - Weight increased [None]
  - Headache [None]
  - Vision blurred [None]
  - Blood glucose fluctuation [None]
  - Blepharospasm [None]
  - Dizziness [None]
  - Confusional state [None]
  - Oropharyngeal pain [None]
  - Hyperhidrosis [None]
  - Speech disorder [None]
  - Dyskinesia [None]
  - Urticaria [None]

NARRATIVE: CASE EVENT DATE: 20210921
